FAERS Safety Report 7768739-8 (Version None)
Quarter: 2011Q3

REPORT INFORMATION
  Report Type: 
  Country: None (occurrence: None)
  Receive Date: 20110922
  Receipt Date: 20110216
  Transmission Date: 20111222
  Serious: No
  Sender: FDA-Public Use
  Company Number: US-ASTRAZENECA-2011SE08963

PATIENT
  Age: 49 Year
  Sex: Male
  Weight: 136.1 kg

DRUGS (8)
  1. SEROQUEL [Suspect]
     Indication: MAJOR DEPRESSION
     Route: 048
     Dates: start: 20000101, end: 20101201
  2. RANITIDINE [Concomitant]
     Indication: GASTROOESOPHAGEAL REFLUX DISEASE
  3. PAROXETINE HYDROCHLORIDE [Concomitant]
     Indication: DEPRESSION
  4. SEROQUEL [Suspect]
     Route: 048
     Dates: start: 20101201
  5. TRAMADOL HCL [Concomitant]
     Indication: PAIN
  6. CYCLOPHOSPHAMIDE [Concomitant]
  7. TRAZODONE HYDROCHLORIDE [Concomitant]
     Indication: SLEEP DISORDER
  8. METFORMIN [Concomitant]
     Indication: DIABETES MELLITUS

REACTIONS (7)
  - CRYING [None]
  - MENTAL DISORDER [None]
  - PAIN IN EXTREMITY [None]
  - INSOMNIA [None]
  - MUSCLE SPASMS [None]
  - LIGAMENT SPRAIN [None]
  - HYPOAESTHESIA [None]
